FAERS Safety Report 5906240-4 (Version None)
Quarter: 2008Q4

REPORT INFORMATION
  Report Type: 
  Country: None (occurrence: None)
  Receive Date: 20081002
  Receipt Date: 20080922
  Transmission Date: 20090506
  Serious: Yes (Other)
  Sender: FDA-Public Use
  Company Number: ES-PFIZER INC-2008079265

PATIENT
  Age: 71 Year
  Sex: Female

DRUGS (1)
  1. SOGILEN [Suspect]
     Indication: PARKINSON'S DISEASE
     Route: 048
     Dates: start: 20000101, end: 20080601

REACTIONS (3)
  - DYSKINESIA [None]
  - OEDEMA PERIPHERAL [None]
  - RAYNAUD'S PHENOMENON [None]
